FAERS Safety Report 15888441 (Version 1)
Quarter: 2019Q1

REPORT INFORMATION
  Report Type: Spontaneous
  Country: US (occurrence: US)
  Receive Date: 20190108
  Receipt Date: 20190108
  Transmission Date: 20190417
  Serious: Yes (Death, Hospitalization)
  Sender: FDA-Public Use
  Company Number: None

PATIENT
  Age: 6 Year
  Sex: Male
  Weight: 38 kg

DRUGS (6)
  1. DAUNORUBICIN [Suspect]
     Active Substance: DAUNORUBICIN
     Dates: end: 20120905
  2. METHOTREXATE. [Suspect]
     Active Substance: METHOTREXATE
     Dates: end: 20120829
  3. CYTARABINE. [Suspect]
     Active Substance: CYTARABINE
     Dates: end: 20120821
  4. ONCASPAR [Suspect]
     Active Substance: PEGASPARGASE
     Dates: end: 20120825
  5. DEXAMETHASONE. [Suspect]
     Active Substance: DEXAMETHASONE
     Dates: end: 20120905
  6. VINCRISTINE SULFATE. [Suspect]
     Active Substance: VINCRISTINE SULFATE
     Dates: end: 20120905

REACTIONS (19)
  - Vomiting [None]
  - Acute kidney injury [None]
  - Febrile neutropenia [None]
  - Lactic acidosis [None]
  - Pain in extremity [None]
  - Hypoalbuminaemia [None]
  - Respiratory failure [None]
  - Generalised oedema [None]
  - Muscular weakness [None]
  - Heart rate increased [None]
  - Renal ischaemia [None]
  - Gastrointestinal haemorrhage [None]
  - Septic shock [None]
  - Candida infection [None]
  - Hypotension [None]
  - Petechiae [None]
  - Peripheral pulse decreased [None]
  - Abdominal pain [None]
  - Cardio-respiratory arrest [None]

NARRATIVE: CASE EVENT DATE: 20120906
